FAERS Safety Report 24118993 (Version 1)
Quarter: 2024Q3

REPORT INFORMATION
  Report Type: Spontaneous
  Country: US (occurrence: US)
  Receive Date: 20240722
  Receipt Date: 20240722
  Transmission Date: 20241016
  Serious: Yes (Other)
  Sender: ACCORD
  Company Number: US-MLMSERVICE-20240705-PI120623-00218-1

PATIENT
  Age: 27 Year
  Sex: Male

DRUGS (51)
  1. AZACITIDINE [Suspect]
     Active Substance: AZACITIDINE
     Indication: Metastases to lymph nodes
     Dosage: 75 MG/M2 ON DAYS 8-14
  2. METHOTREXATE [Suspect]
     Active Substance: METHOTREXATE
     Indication: Intestinal metastasis
     Route: 037
  3. CYCLOPHOSPHAMIDE [Suspect]
     Active Substance: CYCLOPHOSPHAMIDE
     Indication: Metastases to chest wall
     Dosage: 300 MG/M2 ON DAY 1
  4. CYTARABINE [Suspect]
     Active Substance: CYTARABINE
     Indication: Metastases to chest wall
     Route: 037
  5. HYDROCORTISONE [Suspect]
     Active Substance: HYDROCORTISONE\HYDROCORTISONE ACETATE
     Indication: Metastases to lymph nodes
     Route: 037
  6. METHYLPREDNISOLONE [Suspect]
     Active Substance: METHYLPREDNISOLONE
     Indication: Metastases to soft tissue
     Dosage: 30 MG/M2 TWICE DAILY (BID)ON DAYS 1-7.
  7. OBINUTUZUMAB [Suspect]
     Active Substance: OBINUTUZUMAB
     Indication: Intestinal metastasis
     Dosage: 1000 MG ON DAYS 1, 8, 15, 22, AND 29
  8. VENETOCLAX [Suspect]
     Active Substance: VENETOCLAX
     Indication: Intestinal metastasis
     Dosage: 400 MG ON DAYS 8-35
  9. VINCRISTINE [Suspect]
     Active Substance: VINCRISTINE
     Indication: Metastases to lymph nodes
     Dosage: 1 MG/M2 ON DAY 1
  10. OBINUTUZUMAB [Suspect]
     Active Substance: OBINUTUZUMAB
     Indication: Metastases to soft tissue
     Dosage: 1000 MG ON DAYS 1, 8, 15, 22, AND 29
  11. OBINUTUZUMAB [Suspect]
     Active Substance: OBINUTUZUMAB
     Indication: Metastases to chest wall
     Dosage: 1000 MG ON DAYS 1, 8, 15, 22, AND 29
  12. METHYLPREDNISOLONE [Suspect]
     Active Substance: METHYLPREDNISOLONE
     Indication: Intestinal metastasis
     Dosage: 30 MG/M2 TWICE DAILY
  13. METHYLPREDNISOLONE [Suspect]
     Active Substance: METHYLPREDNISOLONE
     Indication: Metastases to lymph nodes
     Dosage: 30 MG/M2 TWICE DAILY
  14. METHYLPREDNISOLONE [Suspect]
     Active Substance: METHYLPREDNISOLONE
     Indication: Diffuse large B-cell lymphoma
     Dosage: 30 MG/M2 TWICE DAILY (BID)ON DAYS 1-7.
  15. VENETOCLAX [Suspect]
     Active Substance: VENETOCLAX
     Indication: Diffuse large B-cell lymphoma
     Dosage: 400 MG ON DAYS 8-35
  16. VINCRISTINE [Suspect]
     Active Substance: VINCRISTINE
     Indication: Metastases to chest wall
     Dosage: 1 MG/M2 ON DAY 1
  17. HYDROCORTISONE [Suspect]
     Active Substance: HYDROCORTISONE\HYDROCORTISONE ACETATE
     Indication: Diffuse large B-cell lymphoma
     Route: 037
  18. CYTARABINE [Suspect]
     Active Substance: CYTARABINE
     Indication: Diffuse large B-cell lymphoma
     Route: 037
  19. CYCLOPHOSPHAMIDE [Suspect]
     Active Substance: CYCLOPHOSPHAMIDE
     Indication: Diffuse large B-cell lymphoma
     Dosage: 300 MG/M2 ON DAY 1
  20. OBINUTUZUMAB [Suspect]
     Active Substance: OBINUTUZUMAB
     Indication: Metastases to lymph nodes
     Dosage: 1000 MG ON DAYS 1, 8, 15, 22, AND 29
  21. OBINUTUZUMAB [Suspect]
     Active Substance: OBINUTUZUMAB
     Indication: Diffuse large B-cell lymphoma
     Dosage: 1000 MG ON DAYS 1, 8, 15, 22, AND 29
  22. OBINUTUZUMAB [Suspect]
     Active Substance: OBINUTUZUMAB
     Indication: Metastases to lymph nodes
     Dosage: 1000 MG ON DAYS 1, 8, 15, 22, AND 29
  23. METHYLPREDNISOLONE [Suspect]
     Active Substance: METHYLPREDNISOLONE
     Indication: Metastases to chest wall
     Dosage: 30 MG/M2 TWICE DAILY (BID)ON DAYS 1-7.
  24. AZACITIDINE [Suspect]
     Active Substance: AZACITIDINE
     Indication: Metastases to soft tissue
     Dosage: 75 MG/M2 ON DAYS 8-14
  25. AZACITIDINE [Suspect]
     Active Substance: AZACITIDINE
     Indication: Diffuse large B-cell lymphoma
     Dosage: 75 MG/M2 ON DAYS 8-14
  26. AZACITIDINE [Suspect]
     Active Substance: AZACITIDINE
     Indication: Metastases to chest wall
     Dosage: 75 MG/M2 ON DAYS 8-14
  27. AZACITIDINE [Suspect]
     Active Substance: AZACITIDINE
     Indication: Diffuse large B-cell lymphoma
     Dosage: 75 MG/M2 ON DAYS 8-14
  28. METHOTREXATE [Suspect]
     Active Substance: METHOTREXATE
     Indication: Diffuse large B-cell lymphoma
     Route: 037
  29. METHOTREXATE [Suspect]
     Active Substance: METHOTREXATE
     Indication: Metastases to soft tissue
     Route: 037
  30. METHOTREXATE [Suspect]
     Active Substance: METHOTREXATE
     Indication: Metastases to lymph nodes
     Route: 037
  31. METHOTREXATE [Suspect]
     Active Substance: METHOTREXATE
     Indication: Metastases to chest wall
     Route: 037
  32. VENETOCLAX [Suspect]
     Active Substance: VENETOCLAX
     Indication: Metastases to chest wall
     Dosage: 400 MG ON DAYS 8-35
  33. VENETOCLAX [Suspect]
     Active Substance: VENETOCLAX
     Indication: Metastases to soft tissue
     Dosage: 400 MG ON DAYS 8-35
  34. VENETOCLAX [Suspect]
     Active Substance: VENETOCLAX
     Indication: Metastases to lymph nodes
     Dosage: 400 MG ON DAYS 8-35
  35. VENETOCLAX [Suspect]
     Active Substance: VENETOCLAX
     Indication: Diffuse large B-cell lymphoma
     Dosage: 400 MG ON DAYS 8-35
  36. HYDROCORTISONE [Suspect]
     Active Substance: HYDROCORTISONE\HYDROCORTISONE ACETATE
     Indication: Metastases to soft tissue
     Route: 037
  37. HYDROCORTISONE [Suspect]
     Active Substance: HYDROCORTISONE\HYDROCORTISONE ACETATE
     Indication: Intestinal metastasis
     Route: 037
  38. HYDROCORTISONE [Suspect]
     Active Substance: HYDROCORTISONE\HYDROCORTISONE ACETATE
     Indication: Metastases to chest wall
     Route: 037
  39. HYDROCORTISONE [Suspect]
     Active Substance: HYDROCORTISONE\HYDROCORTISONE ACETATE
     Indication: Diffuse large B-cell lymphoma
     Route: 037
  40. CYTARABINE [Suspect]
     Active Substance: CYTARABINE
     Indication: Intestinal metastasis
     Route: 037
  41. CYTARABINE [Suspect]
     Active Substance: CYTARABINE
     Indication: Diffuse large B-cell lymphoma
     Route: 037
  42. CYTARABINE [Suspect]
     Active Substance: CYTARABINE
     Indication: Metastases to soft tissue
     Route: 037
  43. CYTARABINE [Suspect]
     Active Substance: CYTARABINE
     Indication: Metastases to lymph nodes
     Route: 037
  44. CYCLOPHOSPHAMIDE [Suspect]
     Active Substance: CYCLOPHOSPHAMIDE
     Indication: Metastases to lymph nodes
     Dosage: 300 MG/M2 ON DAY 1
  45. CYCLOPHOSPHAMIDE [Suspect]
     Active Substance: CYCLOPHOSPHAMIDE
     Indication: Metastases to soft tissue
     Dosage: 300 MG/M2 ON DAY 1
  46. CYCLOPHOSPHAMIDE [Suspect]
     Active Substance: CYCLOPHOSPHAMIDE
     Indication: Intestinal metastasis
     Dosage: 300 MG/M2 ON DAY 1
  47. CYCLOPHOSPHAMIDE [Suspect]
     Active Substance: CYCLOPHOSPHAMIDE
     Indication: Diffuse large B-cell lymphoma
     Dosage: 300 MG/M2 ON DAY 1
  48. OBINUTUZUMAB [Suspect]
     Active Substance: OBINUTUZUMAB
     Indication: Diffuse large B-cell lymphoma
     Dosage: 1000 MG ON DAYS 1, 8, 15, 22, AND 29
  49. METHYLPREDNISOLONE [Suspect]
     Active Substance: METHYLPREDNISOLONE
     Indication: Diffuse large B-cell lymphoma
     Dosage: 30 MG/M2 TWICE DAILY
  50. AZACITIDINE [Suspect]
     Active Substance: AZACITIDINE
     Indication: Intestinal metastasis
     Dosage: 75 MG/M2 ON DAYS 8-14
  51. METHOTREXATE [Suspect]
     Active Substance: METHOTREXATE
     Indication: Diffuse large B-cell lymphoma
     Route: 037

REACTIONS (8)
  - Bacillus infection [Unknown]
  - Brain abscess [Unknown]
  - Clostridium difficile colitis [Unknown]
  - Gastric varices [Unknown]
  - Bacterial sepsis [Unknown]
  - Endocarditis bacterial [Unknown]
  - Venous thrombosis [Unknown]
  - Off label use [Unknown]
